FAERS Safety Report 9246623 (Version 2)
Quarter: 2013Q2

REPORT INFORMATION
  Report Type: Spontaneous
  Country: BR (occurrence: BR)
  Receive Date: 20130422
  Receipt Date: 20130523
  Transmission Date: 20140414
  Serious: Yes (Hospitalization, Other)
  Sender: FDA-Public Use
  Company Number: BR-ELI_LILLY_AND_COMPANY-BR201304004024

PATIENT
  Age: 53 Year
  Sex: Female
  Weight: 76 kg

DRUGS (7)
  1. FORTEO [Suspect]
     Indication: OSTEOPOROSIS
     Dosage: 20 UG, QD
     Route: 058
  2. AMOXICILINA [Concomitant]
     Dosage: UNK, UNKNOWN
     Route: 065
     Dates: start: 201304
  3. OXYGEN [Concomitant]
     Dosage: UNK, UNKNOWN
     Route: 065
  4. CARDIOASPIRINA [Concomitant]
     Dosage: UNK, UNKNOWN
     Route: 065
  5. ASMATEC [Concomitant]
     Dosage: UNK, UNKNOWN
     Route: 065
  6. FUROSEMIDA                         /00032601/ [Concomitant]
     Dosage: UNK, UNKNOWN
     Route: 065
  7. CEFTRIAXONA [Concomitant]
     Dosage: UNK, UNKNOWN
     Route: 065

REACTIONS (7)
  - Emphysema [Recovering/Resolving]
  - Cardiomegaly [Not Recovered/Not Resolved]
  - Pulmonary oedema [Not Recovered/Not Resolved]
  - Hypertension [Unknown]
  - Swelling [Not Recovered/Not Resolved]
  - Urinary tract infection [Recovering/Resolving]
  - Local swelling [Not Recovered/Not Resolved]
